FAERS Safety Report 9902093 (Version 2)
Quarter: 2014Q1

REPORT INFORMATION
  Report Type: Spontaneous
  Country: GB (occurrence: GB)
  Receive Date: 20140217
  Receipt Date: 20140217
  Transmission Date: 20141002
  Serious: Yes (Hospitalization)
  Sender: FDA-Public Use
  Company Number: PHFR2013GB006715

PATIENT
  Age: 37 Year
  Sex: Male

DRUGS (3)
  1. CLOZARIL [Suspect]
     Indication: SCHIZOPHRENIA
     Dosage: UNK
     Route: 048
     Dates: start: 20130617
  2. CLOZARIL [Suspect]
     Dosage: 400 MG, UNK
  3. RISPERIDONE [Concomitant]
     Dosage: UNK

REACTIONS (3)
  - Intentional self-injury [Recovering/Resolving]
  - Mental impairment [Unknown]
  - Hallucination, auditory [Recovering/Resolving]
